FAERS Safety Report 6396393-9 (Version None)
Quarter: 2009Q4

REPORT INFORMATION
  Report Type: 
  Country: None (occurrence: None)
  Receive Date: 20091012
  Receipt Date: 20091005
  Transmission Date: 20100525
  Serious: Yes (Other)
  Sender: FDA-Public Use
  Company Number: US-JNJFOC-20090905640

PATIENT
  Age: 91 Year
  Sex: Female

DRUGS (1)
  1. LEVAQUIN [Suspect]
     Indication: URINARY TRACT INFECTION
     Route: 065
     Dates: start: 20090827, end: 20090901

REACTIONS (3)
  - CONTUSION [None]
  - SENSORY DISTURBANCE [None]
  - TENDON RUPTURE [None]
